FAERS Safety Report 9121972 (Version 1)
Quarter: 2013Q1

REPORT INFORMATION
  Report Type: Spontaneous
  Country: FR (occurrence: FR)
  Receive Date: 20130114
  Receipt Date: 20130114
  Transmission Date: 20140127
  Serious: Yes (Hospitalization)
  Sender: FDA-Public Use
  Company Number: FR-JNJFOC-20130102551

PATIENT
  Age: 61 Year
  Sex: Male

DRUGS (6)
  1. PREZISTA [Suspect]
     Indication: HIV TEST POSITIVE
     Route: 048
     Dates: start: 20121012, end: 20121025
  2. BACTRIM [Suspect]
     Indication: CEREBRAL TOXOPLASMOSIS
     Route: 048
     Dates: start: 20120927, end: 20121025
  3. NORVIR [Suspect]
     Indication: HIV TEST POSITIVE
     Route: 048
     Dates: start: 20121012, end: 20121025
  4. TRUVADA [Suspect]
     Indication: HIV TEST POSITIVE
     Route: 048
     Dates: start: 20121012, end: 20121025
  5. ZELITREX [Suspect]
     Indication: HERPES VIRUS INFECTION
     Route: 065
     Dates: start: 20121017
  6. CORTICOSTEROIDS [Concomitant]
     Indication: CEREBRAL TOXOPLASMOSIS
     Route: 065
     Dates: start: 20120927

REACTIONS (1)
  - Renal failure [Not Recovered/Not Resolved]
